FAERS Safety Report 6318655-3 (Version None)
Quarter: 2009Q3

REPORT INFORMATION
  Report Type: 
  Country: None (occurrence: None)
  Receive Date: 20090821
  Receipt Date: 20090818
  Transmission Date: 20100115
  Serious: Yes (Hospitalization)
  Sender: FDA-Public Use
  Company Number: IT-ROCHE-645512

PATIENT
  Sex: Male
  Weight: 67 kg

DRUGS (4)
  1. CAPECITABINE [Suspect]
     Dosage: FREQUENCY: D1 - 15, LAST DOSE PRIOR TO SAE: 17 JUL 2009.
     Route: 048
     Dates: start: 20090522, end: 20090724
  2. CAPECITABINE [Suspect]
     Dosage: PERMANENTLY DISCONTINUED
     Route: 048
     Dates: end: 20090728
  3. BEVACIZUMAB [Suspect]
     Dosage: DOSE FORM: VIAL, LAST DOSE PRIOR TO SAE: 03 JUL 2009.
     Route: 042
     Dates: start: 20090522, end: 20090724
  4. BEVACIZUMAB [Suspect]
     Dosage: PERMANENTLY DISCONTINUED.
     Route: 042
     Dates: end: 20090728

REACTIONS (3)
  - PULMONARY EMBOLISM [None]
  - RENAL FAILURE ACUTE [None]
  - SUBILEUS [None]
